FAERS Safety Report 17972886 (Version 4)
Quarter: 2020Q3

REPORT INFORMATION
  Report Type: Report from Study
  Country: CA (occurrence: CA)
  Receive Date: 20200702
  Receipt Date: 20200908
  Transmission Date: 20201103
  Serious: Yes (Hospitalization, Other)
  Sender: FDA-Public Use
  Company Number: CA-GLAXOSMITHKLINE-CA2020AMR114453

PATIENT
  Age: 76 Year
  Sex: Male
  Weight: 68 kg

DRUGS (1)
  1. MEPOLIZUMAB [Suspect]
     Active Substance: MEPOLIZUMAB
     Indication: ASTHMA
     Dosage: 100 MG, Z, MONTHLY
     Route: 042
     Dates: start: 20200114

REACTIONS (7)
  - Cerebrovascular accident [Recovered/Resolved with Sequelae]
  - Balance disorder [Unknown]
  - Loss of personal independence in daily activities [Unknown]
  - Ischaemic stroke [Recovered/Resolved with Sequelae]
  - Aphasia [Unknown]
  - Muscular weakness [Unknown]
  - Dysarthria [Unknown]

NARRATIVE: CASE EVENT DATE: 20200627
